FAERS Safety Report 8921327 (Version 2)
Quarter: 2013Q1

REPORT INFORMATION
  Report Type: Spontaneous
  Country: US (occurrence: US)
  Receive Date: 20121122
  Receipt Date: 20130127
  Transmission Date: 20140127
  Serious: No
  Sender: FDA-Public Use
  Company Number: US-009507513-1211USA008321

PATIENT
  Sex: Male

DRUGS (1)
  1. DULERA [Suspect]
     Dosage: 2 PUFFS IN THE MORNING AND TWO AT NIGHT
     Route: 055

REACTIONS (3)
  - Drug dose omission [Unknown]
  - Expired drug administered [Unknown]
  - No adverse event [Unknown]
